FAERS Safety Report 11660216 (Version 1)
Quarter: 2015Q4

REPORT INFORMATION
  Report Type: Report from Study
  Country: AU (occurrence: AU)
  Receive Date: 20151026
  Receipt Date: 20151026
  Transmission Date: 20160304
  Serious: Yes (Other)
  Sender: FDA-Public Use
  Company Number: AU-ABBVIE-15K-008-1484892-00

PATIENT
  Age: 59 Year
  Sex: Female

DRUGS (2)
  1. HUMIRA [Suspect]
     Active Substance: ADALIMUMAB
     Indication: PSORIATIC ARTHROPATHY
     Route: 058
  2. MTX [Suspect]
     Active Substance: METHOTREXATE SODIUM
     Indication: PRODUCT USED FOR UNKNOWN INDICATION
     Route: 065

REACTIONS (10)
  - Abasia [Recovering/Resolving]
  - Stress [Unknown]
  - Irritable bowel syndrome [Recovering/Resolving]
  - Pain in extremity [Unknown]
  - Psoriatic arthropathy [Recovering/Resolving]
  - Malaise [Recovering/Resolving]
  - Dactylitis [Recovering/Resolving]
  - Drug effect decreased [Recovering/Resolving]
  - Arthralgia [Recovering/Resolving]
  - Asthenia [Recovering/Resolving]
